FAERS Safety Report 10201321 (Version 1)
Quarter: 2014Q2

REPORT INFORMATION
  Report Type: Spontaneous
  Country: KR (occurrence: KR)
  Receive Date: 20140528
  Receipt Date: 20140528
  Transmission Date: 20141212
  Serious: Yes (Hospitalization, Other)
  Sender: FDA-Public Use
  Company Number: KR-PFIZER INC-2014143062

PATIENT
  Age: 79 Year
  Sex: Male

DRUGS (2)
  1. EFEXOR XR [Suspect]
     Indication: ABNORMAL DREAMS
     Dosage: 37.5 MG, 1X/DAY
     Route: 048
     Dates: start: 2007, end: 2010
  2. EFEXOR XR [Suspect]
     Indication: DEPRESSION
     Dosage: 75 MG, 1X/DAY
     Route: 048
     Dates: start: 2010, end: 201404

REACTIONS (4)
  - Myocardial infarction [Unknown]
  - Pulmonary oedema [Unknown]
  - Drug dependence [Unknown]
  - Depression [Unknown]
